FAERS Safety Report 13531700 (Version 1)
Quarter: 2017Q2

REPORT INFORMATION
  Report Type: Spontaneous
  Country: US (occurrence: US)
  Receive Date: 20170510
  Receipt Date: 20170510
  Transmission Date: 20170830
  Serious: Yes (Hospitalization, Disabling, Other)
  Sender: FDA-Public Use
  Company Number: None

PATIENT
  Age: 48 Year
  Sex: Male
  Weight: 94.5 kg

DRUGS (8)
  1. CIPROFLOXCIN [Suspect]
     Active Substance: CIPROFLOXACIN
     Indication: URINARY TRACT INFECTION
     Dosage: ?          QUANTITY:1 CAPSULE(S);?EVERY 8 HOURS ORAL
     Route: 048
  2. COREG [Concomitant]
     Active Substance: CARVEDILOL
  3. BUSPIRON [Concomitant]
     Active Substance: BUSPIRONE HYDROCHLORIDE
  4. CLONOPIN [Concomitant]
     Active Substance: CLONAZEPAM
  5. EFFIENT [Concomitant]
     Active Substance: PRASUGREL HYDROCHLORIDE
  6. ASPIRIN. [Concomitant]
     Active Substance: ASPIRIN
  7. CIPROFLOXCIN [Suspect]
     Active Substance: CIPROFLOXACIN
     Indication: DIVERTICULITIS
     Dosage: ?          QUANTITY:1 CAPSULE(S);?EVERY 8 HOURS ORAL
     Route: 048
  8. AVORTASTATIN [Concomitant]

REACTIONS (2)
  - Coronary artery disease [None]
  - Autonomic nervous system imbalance [None]

NARRATIVE: CASE EVENT DATE: 20170314
